FAERS Safety Report 7978855-3 (Version None)
Quarter: 2011Q4

REPORT INFORMATION
  Report Type: 
  Country: None (occurrence: None)
  Receive Date: 20111214
  Receipt Date: 20111213
  Transmission Date: 20120403
  Serious: Yes (Life-Threatening, Hospitalization)
  Sender: FDA-Public Use
  Company Number: US-BRISTOL-MYERS SQUIBB COMPANY-15312275

PATIENT
  Age: 71 Year
  Sex: Female

DRUGS (7)
  1. LANTUS [Suspect]
     Indication: TYPE 2 DIABETES MELLITUS
  2. ASPIRIN [Concomitant]
     Dosage: 1DF={100MG
     Dates: start: 20100818
  3. GLUCOPHAGE [Suspect]
     Indication: TYPE 2 DIABETES MELLITUS
     Dosage: 2000 MG
     Route: 048
  4. PLACEBO [Suspect]
     Indication: TYPE 2 DIABETES MELLITUS
     Route: 048
     Dates: start: 20100819
  5. HYPERTENSION MEDICATION [Concomitant]
  6. DIABETA [Suspect]
     Indication: TYPE 2 DIABETES MELLITUS
  7. BLINDED: SAXAGLIPTIN [Suspect]
     Indication: TYPE 2 DIABETES MELLITUS
     Dosage: LAST DOSE 22SEP2010
     Route: 048
     Dates: start: 20100819, end: 20100922

REACTIONS (6)
  - NAUSEA [None]
  - CHOLELITHIASIS [None]
  - VOMITING [None]
  - HYPOGLYCAEMIA [None]
  - ABDOMINAL PAIN [None]
  - ABDOMINAL PAIN UPPER [None]
